FAERS Safety Report 9432545 (Version 4)
Quarter: 2013Q3

REPORT INFORMATION
  Report Type: Spontaneous
  Country: US (occurrence: US)
  Receive Date: 20130731
  Receipt Date: 20130909
  Transmission Date: 20140515
  Serious: Yes (Death)
  Sender: FDA-Public Use
  Company Number: PHEH2013US015934

PATIENT
  Sex: Male

DRUGS (7)
  1. EXJADE [Suspect]
     Indication: MYELODYSPLASTIC SYNDROME
     Dosage: 500 MG, BID
  2. EXJADE [Suspect]
     Dosage: 500 MG, QD
     Dates: start: 20130101, end: 20130205
  3. SOTALOL [Concomitant]
     Dosage: UNK UKN, UNK
  4. MORPHINE [Concomitant]
     Dosage: UNK UKN, UNK
  5. MSIR [Concomitant]
     Dosage: UNK UKN, UNK
  6. MS CONTIN [Concomitant]
     Dosage: UNK UKN, UNK
  7. ANTIBIOTICS [Concomitant]
     Dosage: UNK UKN, UNK

REACTIONS (4)
  - Sepsis [Fatal]
  - Myelodysplastic syndrome [Fatal]
  - Blood disorder [Unknown]
  - Abdominal discomfort [Unknown]
